FAERS Safety Report 11776848 (Version 1)
Quarter: 2015Q4

REPORT INFORMATION
  Report Type: Spontaneous
  Country: GR (occurrence: GR)
  Receive Date: 20151125
  Receipt Date: 20151125
  Transmission Date: 20160304
  Serious: Yes (Hospitalization)
  Sender: FDA-Public Use
  Company Number: GR-SA-2015SA185440

PATIENT
  Age: 31 Year
  Sex: Female

DRUGS (3)
  1. ISONIAZID. [Suspect]
     Active Substance: ISONIAZID
     Indication: TUBERCULOSIS
     Route: 065
     Dates: start: 2014, end: 2014
  2. RIFAMPICIN [Suspect]
     Active Substance: RIFAMPIN
     Indication: TUBERCULOSIS
     Route: 065
     Dates: start: 2014, end: 2014
  3. PYRAZINAMIDE. [Suspect]
     Active Substance: PYRAZINAMIDE
     Indication: TUBERCULOSIS
     Route: 065
     Dates: start: 2014, end: 2014

REACTIONS (33)
  - Antinuclear antibody positive [Recovering/Resolving]
  - Flushing [Recovering/Resolving]
  - Anti-thyroid antibody positive [Recovering/Resolving]
  - Ejection fraction decreased [Recovering/Resolving]
  - Mitral valve incompetence [Recovering/Resolving]
  - Sensory disturbance [Recovering/Resolving]
  - Complement factor C3 decreased [Recovering/Resolving]
  - Glomerulonephropathy [Recovering/Resolving]
  - Peripheral sensory neuropathy [Recovering/Resolving]
  - Abasia [Recovering/Resolving]
  - Alopecia [Recovering/Resolving]
  - Pyrexia [Recovering/Resolving]
  - Rash [Recovering/Resolving]
  - Albumin urine present [Recovering/Resolving]
  - Chorioretinitis [Recovering/Resolving]
  - Amenorrhoea [Recovering/Resolving]
  - Pulmonary fibrosis [Recovering/Resolving]
  - Vasculitis [Recovering/Resolving]
  - Double stranded DNA antibody positive [Recovering/Resolving]
  - Diastolic dysfunction [Recovering/Resolving]
  - Hypokinesia [Recovering/Resolving]
  - C-reactive protein increased [Recovering/Resolving]
  - Peroneal nerve palsy [Recovering/Resolving]
  - Hypoaesthesia [Recovering/Resolving]
  - Oedema peripheral [Recovering/Resolving]
  - Pericardial effusion [Recovering/Resolving]
  - Ascites [Recovering/Resolving]
  - Complement factor C4 decreased [Recovering/Resolving]
  - Retinal vein thrombosis [Recovering/Resolving]
  - Systemic lupus erythematosus [Recovering/Resolving]
  - White matter lesion [Recovering/Resolving]
  - Cachexia [Recovering/Resolving]
  - Antineutrophil cytoplasmic antibody increased [Recovering/Resolving]

NARRATIVE: CASE EVENT DATE: 201411
